FAERS Safety Report 4331610-8 (Version None)
Quarter: 2004Q2

REPORT INFORMATION
  Report Type: 
  Country: None (occurrence: None)
  Receive Date: 20040405
  Receipt Date: 20021119
  Transmission Date: 20050107
  Serious: Yes (Hospitalization)
  Sender: FDA-Public Use
  Company Number: FR-MERCK-0211FRA00072

PATIENT
  Age: 45 Year
  Sex: Female

DRUGS (10)
  1. ACENOCOUMAROL [Concomitant]
     Indication: CEREBRAL ATHEROSCLEROSIS
     Route: 048
     Dates: start: 19950101
  2. CALCIUM CARBONATE [Concomitant]
     Route: 048
     Dates: start: 19950101
  3. ETIDRONATE DISODIUM [Concomitant]
     Route: 048
     Dates: start: 19950101
  4. FENOFIBRATE [Concomitant]
     Indication: HYPERCHOLESTEROLAEMIA
     Route: 048
     Dates: start: 19950101
  5. HYDROCORTISONE [Concomitant]
     Route: 048
     Dates: start: 20010801
  6. INTERFERON BETA-1A [Suspect]
     Indication: MULTIPLE SCLEROSIS
     Route: 058
     Dates: start: 20010423, end: 20020913
  7. OMEPRAZOLE [Concomitant]
     Route: 048
     Dates: start: 19960101
  8. PRAZEPAM [Concomitant]
     Indication: ANXIETY
     Route: 048
     Dates: start: 19950101
  9. VIOXX [Suspect]
     Route: 048
     Dates: start: 20020401
  10. TRAMADOL HYDROCHLORIDE [Concomitant]
     Route: 048
     Dates: start: 19990101

REACTIONS (1)
  - HYPERTHYROIDISM [None]
